FAERS Safety Report 4331516-4 (Version None)
Quarter: 2004Q2

REPORT INFORMATION
  Report Type: 
  Country: None (occurrence: None)
  Receive Date: 20040405
  Receipt Date: 20040325
  Transmission Date: 20050107
  Serious: Yes (Death, Other)
  Sender: FDA-Public Use
  Company Number: GB-BRISTOL-MYERS SQUIBB COMPANY-12548194

PATIENT

DRUGS (4)
  1. CYCLOPHOSPHAMIDE [Suspect]
     Route: 042
  2. ACTIVASE [Suspect]
     Indication: VENOOCCLUSIVE LIVER DISEASE
     Route: 042
  3. BUSULFAN [Suspect]
     Route: 048
  4. HEPARIN [Concomitant]
     Dosage: 5 UNITS/KG/HOUR
     Route: 042

REACTIONS (2)
  - MULTI-ORGAN FAILURE [None]
  - VENOOCCLUSIVE LIVER DISEASE [None]
